FAERS Safety Report 15112446 (Version 1)
Quarter: 2018Q3

REPORT INFORMATION
  Report Type: Spontaneous
  Country: None (occurrence: US)
  Receive Date: 20180705
  Receipt Date: 20180705
  Transmission Date: 20181010
  Serious: No
  Sender: FDA-Public Use
  Company Number: US-MEDAC PHARMA, INC.-2051490

PATIENT
  Age: 81 Year
  Sex: Female
  Weight: 50.91 kg

DRUGS (7)
  1. LOSARTAN. [Concomitant]
     Active Substance: LOSARTAN
  2. MAGNESIUM [Concomitant]
     Active Substance: MAGNESIUM
  3. VITAMIN D [Concomitant]
     Active Substance: CHOLECALCIFEROL
  4. AROMASIN [Concomitant]
     Active Substance: EXEMESTANE
  5. FOLIC ACID. [Concomitant]
     Active Substance: FOLIC ACID
  6. RASUVO [Suspect]
     Active Substance: METHOTREXATE SODIUM
     Indication: RHEUMATOID ARTHRITIS
  7. BAYER ASPIRIN [Concomitant]
     Active Substance: ASPIRIN

REACTIONS (2)
  - Injection site bruising [Recovering/Resolving]
  - Injection site pain [Recovered/Resolved]

NARRATIVE: CASE EVENT DATE: 20180530
